FAERS Safety Report 10052122 (Version 2)
Quarter: 2014Q2

REPORT INFORMATION
  Report Type: Report from Study
  Country: IN (occurrence: IN)
  Receive Date: 20140402
  Receipt Date: 20140407
  Transmission Date: 20141212
  Serious: Yes (Death)
  Sender: FDA-Public Use
  Company Number: IN-ROCHE-1374370

PATIENT
  Age: 62 Year
  Sex: Male

DRUGS (10)
  1. MABTHERA [Suspect]
     Indication: NON-HODGKIN^S LYMPHOMA
     Route: 042
     Dates: start: 201307, end: 201310
  2. MABTHERA [Suspect]
     Indication: DIFFUSE LARGE B-CELL LYMPHOMA
  3. CARBOPLATIN [Suspect]
     Indication: NON-HODGKIN^S LYMPHOMA
     Route: 065
     Dates: start: 201311
  4. CARBOPLATIN [Suspect]
     Indication: DIFFUSE LARGE B-CELL LYMPHOMA
  5. CISPLATIN [Suspect]
     Indication: NON-HODGKIN^S LYMPHOMA
     Route: 065
     Dates: start: 201312, end: 201401
  6. CISPLATIN [Suspect]
     Indication: DIFFUSE LARGE B-CELL LYMPHOMA
  7. CYTARABINE [Suspect]
     Indication: NON-HODGKIN^S LYMPHOMA
     Route: 065
     Dates: start: 201312, end: 201401
  8. CYTARABINE [Suspect]
     Indication: DIFFUSE LARGE B-CELL LYMPHOMA
  9. DEXAMETHASONE [Suspect]
     Indication: NON-HODGKIN^S LYMPHOMA
     Route: 065
     Dates: start: 201312, end: 201401
  10. DEXAMETHASONE [Suspect]
     Indication: DIFFUSE LARGE B-CELL LYMPHOMA

REACTIONS (5)
  - Hypotension [Fatal]
  - Heart rate decreased [Fatal]
  - Gastric infection [Fatal]
  - Diarrhoea [Fatal]
  - Asthenia [Fatal]
